FAERS Safety Report 9787279 (Version 2)
Quarter: 2013Q4

REPORT INFORMATION
  Report Type: Report from Study
  Country: US (occurrence: US)
  Receive Date: 20131230
  Receipt Date: 20131230
  Transmission Date: 20140711
  Serious: Yes (Hospitalization, Other)
  Sender: FDA-Public Use
  Company Number: US-ROCHE-1250026

PATIENT
  Age: 71 Year
  Sex: Male

DRUGS (6)
  1. BEVACIZUMAB [Suspect]
     Indication: NON-SMALL CELL LUNG CANCER
     Dosage: OVER 30 TO 90 MIN ON DAY 1
     Route: 042
     Dates: start: 20130506
  2. CARBOPLATIN [Suspect]
     Indication: NON-SMALL CELL LUNG CANCER
     Dosage: AUC IS EQUAL TO 6, OVER 30 MIN ON DAY 1
     Route: 042
     Dates: start: 20130506
  3. PACLITAXEL [Suspect]
     Indication: NON-SMALL CELL LUNG CANCER
     Dosage: OVER 3 HRS ON DAY 1
     Route: 042
     Dates: start: 20130506
  4. CIXUTUMUMAB [Suspect]
     Indication: NON-SMALL CELL LUNG CANCER
     Dosage: OVER 1 HR ON DAYS 1, 8 AND 15
     Route: 042
     Dates: start: 20130506
  5. CIXUTUMUMAB [Suspect]
     Route: 042
  6. CIXUTUMUMAB [Suspect]
     Dosage: WITH A 50% RATE REDUCTION
     Route: 042

REACTIONS (10)
  - Dehydration [Unknown]
  - Diarrhoea [Recovered/Resolved]
  - Decreased appetite [Unknown]
  - Neutrophil count decreased [Unknown]
  - Back pain [Recovered/Resolved]
  - Respiratory failure [Unknown]
  - Lung infection [Unknown]
  - Pleural effusion [Unknown]
  - Renal failure acute [Unknown]
  - Platelet count decreased [Unknown]
